FAERS Safety Report 10340300 (Version 2)
Quarter: 2014Q3

REPORT INFORMATION
  Report Type: Spontaneous
  Country: US (occurrence: US)
  Receive Date: 20140724
  Receipt Date: 20140724
  Transmission Date: 20150326
  Serious: No
  Sender: FDA-Public Use
  Company Number: US-ASTRAZENECA-2013SE72165

PATIENT
  Age: 41 Year
  Sex: Male
  Weight: 97.5 kg

DRUGS (3)
  1. SONATA [Concomitant]
     Active Substance: ZALEPLON
     Indication: SLEEP DISORDER
     Route: 048
     Dates: end: 201307
  2. SEROQUEL [Suspect]
     Active Substance: QUETIAPINE FUMARATE
     Indication: SLEEP DISORDER
     Route: 048
     Dates: start: 2008, end: 20130923
  3. SONATA [Concomitant]
     Active Substance: ZALEPLON
     Indication: SLEEP DISORDER
     Route: 048
     Dates: start: 201307

REACTIONS (6)
  - Insomnia [Not Recovered/Not Resolved]
  - Headache [Unknown]
  - Intentional product misuse [Unknown]
  - Drug dose omission [Not Recovered/Not Resolved]
  - Off label use [Unknown]
  - Eye pain [Unknown]

NARRATIVE: CASE EVENT DATE: 2008
